FAERS Safety Report 4574712-3 (Version None)
Quarter: 2005Q1

REPORT INFORMATION
  Report Type: 
  Country: None (occurrence: None)
  Receive Date: 20050208
  Receipt Date: 20040707
  Transmission Date: 20050727
  Serious: Yes (Other)
  Sender: FDA-Public Use
  Company Number: US-GLAXOSMITHKLINE-A0517279A

PATIENT
  Age: 23 Year
  Sex: Male

DRUGS (3)
  1. PAXIL [Suspect]
     Indication: DEPRESSION
     Route: 048
  2. ANTIHYPERTENSIVE [Concomitant]
  3. IRON [Concomitant]

REACTIONS (4)
  - AGITATION [None]
  - DEPRESSION [None]
  - HALLUCINATION [None]
  - TENSION [None]
